FAERS Safety Report 4896333-5 (Version None)
Quarter: 2006Q1

REPORT INFORMATION
  Report Type: 
  Country: None (occurrence: None)
  Receive Date: 20060126
  Receipt Date: 20060116
  Transmission Date: 20060701
  Serious: Yes (Hospitalization)
  Sender: FDA-Public Use
  Company Number: 2006-00173

PATIENT
  Age: 24 Year
  Sex: Female

DRUGS (1)
  1. RECLIPSEN (WATSON LABORATORIES) (ETHINYL ESTRADIOL 0.03 MG, DESOGESTRE [Suspect]
     Indication: ORAL CONTRACEPTION
     Dosage: 0.02 MG/0.15MG TAKEN FOR 10 YEARS, ORAL
     Route: 048

REACTIONS (2)
  - BILE DUCT CANCER [None]
  - HEPATIC NEOPLASM MALIGNANT [None]
